FAERS Safety Report 5469713-7 (Version None)
Quarter: 2007Q3

REPORT INFORMATION
  Report Type: 
  Country: None (occurrence: None)
  Receive Date: 20070926
  Receipt Date: 20070926
  Transmission Date: 20080115
  Serious: Yes (Hospitalization)
  Sender: FDA-Public Use
  Company Number: None

PATIENT
  Age: 57 Year
  Sex: Male

DRUGS (1)
  1. POLYMYXIN B [Suspect]
     Indication: ACINETOBACTER INFECTION
     Dosage: 900,000UNITS BID IV
     Route: 042
     Dates: start: 20070912, end: 20070914

REACTIONS (2)
  - BLOOD CREATININE INCREASED [None]
  - BLOOD UREA INCREASED [None]
